FAERS Safety Report 17611233 (Version 1)
Quarter: 2020Q2

REPORT INFORMATION
  Report Type: Spontaneous
  Country: US (occurrence: US)
  Receive Date: 20200401
  Receipt Date: 20200401
  Transmission Date: 20200713
  Serious: No
  Sender: FDA-Public Use
  Company Number: US-ASTRAZENECA-2020SE42959

PATIENT
  Sex: Male
  Weight: 10 kg

DRUGS (2)
  1. MULTIVITAMIN INFANT [Concomitant]
  2. SYNAGIS [Suspect]
     Active Substance: PALIVIZUMAB
     Indication: RESPIRATORY SYNCYTIAL VIRUS TEST
     Route: 030
     Dates: start: 201911

REACTIONS (3)
  - Product dose omission [Unknown]
  - Influenza [Unknown]
  - Pyrexia [Unknown]
